FAERS Safety Report 4578040-1 (Version None)
Quarter: 2005Q1

REPORT INFORMATION
  Report Type: 
  Country: None (occurrence: None)
  Receive Date: 20050127
  Receipt Date: 20040901
  Transmission Date: 20050727
  Serious: No
  Sender: FDA-Public Use
  Company Number: USA040977075

PATIENT
  Age: 14 Year
  Sex: Male
  Weight: 51 kg

DRUGS (1)
  1. STRATTERA [Suspect]
     Indication: ATTENTION DEFICIT/HYPERACTIVITY DISORDER
     Dosage: 40  MG/L IN THE EVENING
     Dates: start: 20040828

REACTIONS (5)
  - AGGRESSION [None]
  - FEELING OF RELAXATION [None]
  - LETHARGY [None]
  - MEDICATION ERROR [None]
  - STOMACH DISCOMFORT [None]
